FAERS Safety Report 6763004-X (Version None)
Quarter: 2010Q2

REPORT INFORMATION
  Report Type: 
  Country: None (occurrence: None)
  Receive Date: 20100608
  Receipt Date: 20100608
  Transmission Date: 20101027
  Serious: Yes (Hospitalization)
  Sender: FDA-Public Use
  Company Number: None

PATIENT
  Age: 69 Year
  Sex: Male
  Weight: 92.7 kg

DRUGS (6)
  1. IPLLIMUMAB [Suspect]
     Indication: METASTATIC MALIGNANT MELANOMA
     Dosage: 292 MG 5/5/10 + 280MG 5/26/10 DAY 1 + 22 IV
     Route: 042
     Dates: start: 20100505
  2. IPLLIMUMAB [Suspect]
     Indication: METASTATIC MALIGNANT MELANOMA
     Dosage: 292 MG 5/5/10 + 280MG 5/26/10 DAY 1 + 22 IV
     Route: 042
     Dates: start: 20100526
  3. METOCLOPRAMIDE [Concomitant]
  4. ATIVAN [Concomitant]
  5. CALCIUM GLUCONATE [Concomitant]
  6. POTASSIUM CHLORIDE [Concomitant]

REACTIONS (1)
  - INTESTINAL OBSTRUCTION [None]
